FAERS Safety Report 7658816-4 (Version None)
Quarter: 2011Q3

REPORT INFORMATION
  Report Type: 
  Country: None (occurrence: None)
  Receive Date: 20110805
  Receipt Date: 20110802
  Transmission Date: 20111222
  Serious: Yes (Life-Threatening, Hospitalization)
  Sender: FDA-Public Use
  Company Number: JP-B.I. PHARMACEUTICALS,INC./RIDGEFIELD-2011-BP-17592NB

PATIENT
  Age: 88 Year
  Sex: Female

DRUGS (16)
  1. PLAVIX [Concomitant]
     Indication: LACUNAR INFARCTION
     Dosage: 75 MG
     Route: 048
     Dates: start: 20110301, end: 20110614
  2. LIVALO [Concomitant]
     Indication: HYPERLIPIDAEMIA
     Dosage: 1 MG
     Route: 048
  3. IBRUPROFEN [Concomitant]
     Dosage: 600 MG
     Route: 065
  4. /TOKI-KENCHU-TO [Concomitant]
     Dosage: 1.5 G
     Route: 065
  5. OMEPRAZOLE [Suspect]
     Dosage: 20 MG
     Route: 048
     Dates: start: 20100901, end: 20110614
  6. SITAGLIPTIN PHOSPHATE [Concomitant]
     Dosage: 50 MG
     Route: 065
  7. CLARITHROMYCIN [Concomitant]
     Dosage: 400 MG
     Route: 065
  8. EVISTA [Concomitant]
     Indication: OSTEOPOROSIS
     Dosage: 60 MG
     Route: 048
  9. FERROUS SULFATE TAB [Concomitant]
     Indication: IRON DEFICIENCY ANAEMIA
     Dosage: 210 MG
     Route: 048
     Dates: start: 20100901
  10. ASVERIN [Concomitant]
     Dosage: 60 MG
     Route: 065
  11. METFORMIN HCL [Concomitant]
     Indication: HYPERLIPIDAEMIA
     Dosage: 500 MG
     Route: 048
     Dates: start: 20110301
  12. TELMISARTAN AND HYDROCHLOROTHIAZIDE [Suspect]
     Indication: HYPERTENSION
     Dosage: TELMISARTAN 40MG/HCTZ 12.5MG
     Route: 048
     Dates: start: 20110301, end: 20110616
  13. DOXAZOSIN MESYLATE [Concomitant]
     Indication: HYPERTENSION
     Dosage: 2 MG
     Route: 048
     Dates: start: 20100901
  14. ADALAT [Concomitant]
     Indication: HYPERTENSION
     Dosage: 40 MG
     Route: 048
     Dates: start: 20100901
  15. CINAL [Concomitant]
  16. /RYO-KYO-JUTSU-KAN-TO [Concomitant]
     Dosage: 6 G
     Route: 065

REACTIONS (4)
  - HYPONATRAEMIA [None]
  - FALL [None]
  - ALTERED STATE OF CONSCIOUSNESS [None]
  - SUBDURAL HAEMATOMA [None]
